FAERS Safety Report 15933407 (Version 2)
Quarter: 2019Q1

REPORT INFORMATION
  Report Type: Spontaneous
  Country: US (occurrence: US)
  Receive Date: 20190207
  Receipt Date: 20190313
  Transmission Date: 20190417
  Serious: Yes (Other)
  Sender: FDA-Public Use
  Company Number: US-HORIZON-PEN-0119-2019

PATIENT
  Age: 44 Year
  Sex: Female

DRUGS (35)
  1. FLEXERIL [Concomitant]
     Active Substance: CYCLOBENZAPRINE HYDROCHLORIDE
  2. FLUOXETINE [Concomitant]
     Active Substance: FLUOXETINE HYDROCHLORIDE
  3. AMBIEN [Concomitant]
     Active Substance: ZOLPIDEM TARTRATE
  4. ASCORBIC ACID. [Concomitant]
     Active Substance: ASCORBIC ACID
  5. LEXAPRO [Concomitant]
     Active Substance: ESCITALOPRAM OXALATE
  6. PENNSAID [Suspect]
     Active Substance: DICLOFENAC SODIUM
     Indication: NEUROPATHY PERIPHERAL
     Dosage: AT NIGHT
     Dates: start: 201809
  7. MORPHINE [Concomitant]
     Active Substance: MORPHINE
  8. HYDROCODONE [Concomitant]
     Active Substance: HYDROCODONE
  9. CLONAZEPAM. [Concomitant]
     Active Substance: CLONAZEPAM
  10. FLUCONAZOLE. [Concomitant]
     Active Substance: FLUCONAZOLE
  11. VITAMIN B1 [Concomitant]
     Active Substance: THIAMINE HYDROCHLORIDE
  12. FERROUS SULFATE. [Concomitant]
     Active Substance: FERROUS SULFATE
  13. FLOVENT [Concomitant]
     Active Substance: FLUTICASONE PROPIONATE
  14. LASIX [Concomitant]
     Active Substance: FUROSEMIDE
  15. GABAPENTIN. [Concomitant]
     Active Substance: GABAPENTIN
  16. HYDROCHLOROTHIAZIDE. [Concomitant]
     Active Substance: HYDROCHLOROTHIAZIDE
  17. POTASSIUM CHLORIDE. [Concomitant]
     Active Substance: POTASSIUM CHLORIDE
  18. TRAZODONE [Concomitant]
     Active Substance: TRAZODONE HYDROCHLORIDE
  19. EUCERIN [Concomitant]
     Active Substance: ENSULIZOLE\EUCERIN\OCTINOXATE\OCTISALATE\TITANIUM DIOXIDE\ZINC OXIDE
  20. LIDOCAINE 5% [Concomitant]
     Active Substance: LIDOCAINE
  21. NAPROXEN. [Concomitant]
     Active Substance: NAPROXEN
  22. NYSTATIN. [Concomitant]
     Active Substance: NYSTATIN
  23. RITALIN [Concomitant]
     Active Substance: METHYLPHENIDATE HYDROCHLORIDE
  24. VITAMIN B COMPLEX [Concomitant]
     Active Substance: CYANOCOBALAMIN\DEXPANTHENOL\NIACINAMIDE\PYRIDOXINE HYDROCHLORIDE\RIBOFLAVIN 5^-PHOSPHATE SODIUM\THIAMINE HYDROCHLORIDE\VITAMIN B COMPLEX
  25. ABUTEROL [Concomitant]
  26. METOPROLOL TARTRATE. [Concomitant]
     Active Substance: METOPROLOL TARTRATE
  27. OMEPRAZOLE. [Concomitant]
     Active Substance: OMEPRAZOLE
  28. SINGULAIR [Concomitant]
     Active Substance: MONTELUKAST SODIUM
  29. TRAMADOL. [Concomitant]
     Active Substance: TRAMADOL
  30. PROAIR HFA [Concomitant]
     Active Substance: ALBUTEROL SULFATE
  31. ADDERALL XR [Concomitant]
     Active Substance: AMPHETAMINE ASPARTATE\AMPHETAMINE SULFATE\DEXTROAMPHETAMINE SACCHARATE\DEXTROAMPHETAMINE SULFATE
  32. FLONASE [Concomitant]
     Active Substance: FLUTICASONE PROPIONATE
  33. SUMATRIPTAN. [Concomitant]
     Active Substance: SUMATRIPTAN
  34. SYMBICORT [Concomitant]
     Active Substance: BUDESONIDE\FORMOTEROL FUMARATE DIHYDRATE
  35. TRIAMCINOLONE [Concomitant]
     Active Substance: TRIAMCINOLONE

REACTIONS (5)
  - Muscle spasms [Not Recovered/Not Resolved]
  - Gait inability [Not Recovered/Not Resolved]
  - Off label use [Not Recovered/Not Resolved]
  - Insurance issue [Not Recovered/Not Resolved]
  - Inability to afford medication [Not Recovered/Not Resolved]
